FAERS Safety Report 17135958 (Version 2)
Quarter: 2020Q1

REPORT INFORMATION
  Report Type: Spontaneous
  Country: NP (occurrence: NP)
  Receive Date: 20191210
  Receipt Date: 20200331
  Transmission Date: 20200409
  Serious: Yes (Life-Threatening, Hospitalization)
  Sender: FDA-Public Use
  Company Number: NP-PFIZER INC-2019528588

PATIENT
  Age: 28 Year
  Sex: Female

DRUGS (10)
  1. CEFAZOLINE [CEFAZOLIN] [Suspect]
     Active Substance: CEFAZOLIN
     Indication: ANTIBIOTIC THERAPY
     Dosage: 1GM FIRST DOSE PREOPERATIVELY
     Route: 042
  2. FUSIDIC ACID+BETAMETHASONE VALERATE/MYLAN [Suspect]
     Active Substance: BETAMETHASONE VALERATE\FUSIDIC ACID
     Dosage: UNK (FUSIDIC ACID 2% + BETAMETHASONE VALERATE 0.1%)
  3. CLINDAMYCIN PHOSPHATE. [Suspect]
     Active Substance: CLINDAMYCIN PHOSPHATE
     Indication: ANTIBIOTIC THERAPY
     Dosage: 600 MG, 3X/DAY (8 HOURLY)
     Route: 042
  4. HYDROCORTISONE. [Suspect]
     Active Substance: HYDROCORTISONE
     Dosage: 100 MG, UNK (INJECTION)
  5. CEFAZOLINE [CEFAZOLIN] [Suspect]
     Active Substance: CEFAZOLIN
     Dosage: 3 DF, 3X/DAY (3 DOSES THEREAFTER 8 HOURLY)
  6. CEFTRIAXONE. [Suspect]
     Active Substance: CEFTRIAXONE
     Indication: ANTIBIOTIC THERAPY
     Dosage: 2 G, 1X/DAY
     Route: 042
  7. LORATADINE. [Suspect]
     Active Substance: LORATADINE
     Dosage: 10 MG, 1X/DAY (ONCE AT NIGHT)
  8. ENOXAPARIN SODIUM. [Suspect]
     Active Substance: ENOXAPARIN SODIUM
     Dosage: 40 MG, 1X/DAY
     Route: 058
  9. METRONIDAZOLE. [Suspect]
     Active Substance: METRONIDAZOLE
     Indication: ANTIBIOTIC PROPHYLAXIS
     Dosage: 2 G, SINGLE (POSTOPERATIVELY)
     Route: 042
  10. CEFADROXIL. [Suspect]
     Active Substance: CEFADROXIL
     Indication: ANTIBIOTIC THERAPY
     Dosage: 500 MG, 2X/DAY (TAB.)

REACTIONS (3)
  - Leukaemoid reaction [Recovered/Resolved]
  - Pyrexia [Recovered/Resolved]
  - Toxic epidermal necrolysis [Recovered/Resolved]
